FAERS Safety Report 5750564-0 (Version None)
Quarter: 2008Q2

REPORT INFORMATION
  Report Type: 
  Country: None (occurrence: None)
  Receive Date: 20080523
  Receipt Date: 20080523
  Transmission Date: 20081010
  Serious: No
  Sender: FDA-Public Use
  Company Number: None

PATIENT

DRUGS (1)
  1. CREST PRO-HEALTH RINSE  PROCTOR + GAMBLE [Suspect]
     Indication: DENTAL DISORDER PROPHYLAXIS
     Dosage: 20 ML.-4 TEASPOONFULS- TWICE DAILY PO (DURATION: 1 1/2 YEARS)
     Route: 048

REACTIONS (1)
  - TOOTH DISCOLOURATION [None]
